FAERS Safety Report 20496193 (Version 1)
Quarter: 2022Q1

REPORT INFORMATION
  Report Type: Spontaneous
  Country: US (occurrence: US)
  Receive Date: 20220221
  Receipt Date: 20220221
  Transmission Date: 20220423
  Serious: Yes (Other)
  Sender: FDA-Public Use
  Company Number: US-GLAXOSMITHKLINE-US2022GSK027206

PATIENT
  Sex: Female

DRUGS (4)
  1. ZANTAC [Suspect]
     Active Substance: RANITIDINE HYDROCHLORIDE
     Indication: Breast pain
     Dosage: UNK UNK, QD
     Route: 065
     Dates: start: 199001, end: 201301
  2. ZANTAC [Suspect]
     Active Substance: RANITIDINE HYDROCHLORIDE
     Indication: Breast pain
     Dosage: UNK UNK, QD
     Route: 065
     Dates: start: 199001, end: 201301
  3. RANITIDINE [Suspect]
     Active Substance: RANITIDINE
     Indication: Breast pain
     Dosage: UNK, OCCASIONAL
     Route: 065
     Dates: start: 199001, end: 201301
  4. RANITIDINE [Suspect]
     Active Substance: RANITIDINE
     Indication: Breast pain
     Dosage: UNK
     Route: 065
     Dates: start: 199001, end: 201301

REACTIONS (1)
  - Breast cancer [Unknown]
